FAERS Safety Report 18762446 (Version 1)
Quarter: 2021Q1

REPORT INFORMATION
  Report Type: Spontaneous
  Country: DE (occurrence: DE)
  Receive Date: 20210120
  Receipt Date: 20210120
  Transmission Date: 20210419
  Serious: Yes (Other)
  Sender: FDA-Public Use
  Company Number: NVSC2021DE008513

PATIENT
  Sex: Female

DRUGS (1)
  1. VALSARTAN ? 1 A PHARMA 80 MG FILMTABLETTEN [Suspect]
     Active Substance: VALSARTAN
     Indication: CARDIAC FAILURE
     Dosage: 80 MG, QD
     Route: 065
     Dates: start: 2015

REACTIONS (5)
  - Emotional distress [Unknown]
  - Renal disorder [Unknown]
  - Drug-induced liver injury [Unknown]
  - Liver disorder [Unknown]
  - Fear of disease [Unknown]

NARRATIVE: CASE EVENT DATE: 2017
